FAERS Safety Report 4620882-8 (Version None)
Quarter: 2005Q1

REPORT INFORMATION
  Report Type: 
  Country: None (occurrence: None)
  Receive Date: 20050325
  Receipt Date: 20050310
  Transmission Date: 20050727
  Serious: Yes (Other)
  Sender: FDA-Public Use
  Company Number: S05-USA-01449-01

PATIENT
  Age: 27 Year
  Sex: Female

DRUGS (6)
  1. CELEXA [Suspect]
  2. WELLBUTRIN [Suspect]
     Indication: MAJOR DEPRESSION
     Dosage: 300 MG QD; PO
     Route: 048
     Dates: start: 20040114, end: 20041012
  3. WELLBUTRIN [Suspect]
     Indication: MAJOR DEPRESSION
     Dosage: 150 MG QD; PO
     Route: 048
     Dates: start: 20041013, end: 20041019
  4. WELLBUTRIN [Suspect]
     Indication: MAJOR DEPRESSION
     Dosage: 300 MG QD; PO
     Route: 048
     Dates: start: 20041020
  5. ALLEGRA [Suspect]
  6. ZANTAC [Suspect]

REACTIONS (4)
  - DRUG EXPOSURE DURING PREGNANCY [None]
  - HAEMORRHAGE [None]
  - PREGNANCY [None]
  - UMBILICAL CORD ABNORMALITY [None]
